FAERS Safety Report 9102752 (Version 1)
Quarter: 2013Q1

REPORT INFORMATION
  Report Type: Spontaneous
  Country: FR (occurrence: FR)
  Receive Date: 20130219
  Receipt Date: 20130219
  Transmission Date: 20140127
  Serious: Yes (Hospitalization, Other)
  Sender: FDA-Public Use
  Company Number: FR-PFIZER INC-2013061261

PATIENT
  Age: 55 Year
  Sex: Male

DRUGS (8)
  1. EUPANTOL [Suspect]
     Dosage: 40 MG DAILY
     Route: 048
     Dates: start: 20121224, end: 20130124
  2. CALCIPARIN [Concomitant]
     Dosage: UNK
  3. PARACETAMOL [Concomitant]
     Dosage: UNK
     Dates: start: 20130112
  4. ZOLPIDEM [Concomitant]
     Dosage: UNK
     Dates: start: 20130114
  5. ZYPREXA [Concomitant]
  6. LEPTICUR [Concomitant]
  7. VITAMIN B1 AND B6 [Concomitant]
     Dosage: UNK
     Dates: start: 20121224
  8. PAROXETINE [Concomitant]

REACTIONS (1)
  - Agranulocytosis [Recovered/Resolved]
